FAERS Safety Report 8380564-6 (Version None)
Quarter: 2012Q2

REPORT INFORMATION
  Report Type: 
  Country: None (occurrence: None)
  Receive Date: 20120523
  Receipt Date: 20120516
  Transmission Date: 20120825
  Serious: Yes (Hospitalization)
  Sender: FDA-Public Use
  Company Number: AU-ROCHE-1070062

PATIENT
  Sex: Male

DRUGS (8)
  1. PANAFCORT [Concomitant]
  2. ACTEMRA [Suspect]
     Indication: RHEUMATOID ARTHRITIS
     Dosage: 28 ML
     Dates: start: 20110429
  3. SYMBICORT [Concomitant]
  4. FOLIC ACID [Concomitant]
  5. SPIRIVA [Concomitant]
  6. NAPROSYN [Concomitant]
  7. IRBESARTAN AND HYDROCHLOROTHIAZIDE [Concomitant]
  8. METHOTREXATE [Concomitant]
     Dosage: METHOBLASTIN

REACTIONS (1)
  - MALAISE [None]
